FAERS Safety Report 6312037-6 (Version None)
Quarter: 2009Q3

REPORT INFORMATION
  Report Type: 
  Country: None (occurrence: None)
  Receive Date: 20090817
  Receipt Date: 20090810
  Transmission Date: 20100115
  Serious: No
  Sender: FDA-Public Use
  Company Number: US-B.I. PHARMACEUTICALS,INC./RIDGEFIELD-2009-BP-09372BP

PATIENT
  Sex: Female

DRUGS (1)
  1. ZANTAC 75 [Suspect]
     Indication: DYSPEPSIA
     Dosage: 375 MG
     Route: 048
     Dates: start: 20080701

REACTIONS (2)
  - DRUG INEFFECTIVE [None]
  - INCORRECT DOSE ADMINISTERED [None]
